FAERS Safety Report 11151260 (Version 1)
Quarter: 2015Q2

REPORT INFORMATION
  Report Type: Spontaneous
  Country: US (occurrence: None)
  Receive Date: 20150528
  Receipt Date: 20150528
  Transmission Date: 20150821
  Serious: Yes (Other)
  Sender: FDA-Public Use
  Company Number: RAP-001022-2015

PATIENT
  Age: 20 Year
  Sex: Male

DRUGS (1)
  1. PROCYSBI DELAYED-RELEASE [Suspect]
     Active Substance: CYSTEAMINE BITARTRATE
     Indication: CYSTINOSIS
     Route: 048
     Dates: start: 201402, end: 201502

REACTIONS (7)
  - Nausea [None]
  - Intentional product misuse [None]
  - Gastrointestinal inflammation [None]
  - Depression [None]
  - Headache [None]
  - Dizziness [None]
  - Cough [None]

NARRATIVE: CASE EVENT DATE: 201505
